FAERS Safety Report 12579659 (Version 3)
Quarter: 2016Q3

REPORT INFORMATION
  Report Type: Spontaneous
  Country: NL (occurrence: NL)
  Receive Date: 20160721
  Receipt Date: 20160811
  Transmission Date: 20161109
  Serious: No
  Sender: FDA-Public Use
  Company Number: NL-JNJFOC-20160715229

PATIENT
  Age: 32 Year
  Sex: Female

DRUGS (1)
  1. TOPIRAMATE. [Suspect]
     Active Substance: TOPIRAMATE
     Indication: PRODUCT USED FOR UNKNOWN INDICATION
     Route: 048
     Dates: start: 20160615, end: 20160622

REACTIONS (2)
  - Myopia [Recovered/Resolved]
  - Chorioretinal folds [Recovered/Resolved]

NARRATIVE: CASE EVENT DATE: 20160623
